FAERS Safety Report 5994830-2 (Version None)
Quarter: 2008Q4

REPORT INFORMATION
  Report Type: 
  Country: None (occurrence: None)
  Receive Date: 20081212
  Receipt Date: 20080916
  Transmission Date: 20090506
  Serious: Yes (Hospitalization)
  Sender: FDA-Public Use
  Company Number: US-ABBOTT-08P-163-0476481-00

PATIENT
  Sex: Female

DRUGS (2)
  1. HUMIRA [Suspect]
     Indication: RHEUMATOID ARTHRITIS
     Dates: start: 20070101
  2. PREDNISONE TAB [Concomitant]
     Indication: DRUG USE FOR UNKNOWN INDICATION

REACTIONS (8)
  - HAEMORRHAGE [None]
  - INFECTION [None]
  - OPEN WOUND [None]
  - PAIN [None]
  - PURULENT DISCHARGE [None]
  - SKIN ULCER [None]
  - SWELLING [None]
  - WOUND DRAINAGE [None]
